FAERS Safety Report 4394231-7 (Version None)
Quarter: 2004Q3

REPORT INFORMATION
  Report Type: 
  Country: None (occurrence: None)
  Receive Date: 20040712
  Receipt Date: 20040528
  Transmission Date: 20050211
  Serious: Yes (Hospitalization, Other)
  Sender: FDA-Public Use
  Company Number: PHBS2004JP07167

PATIENT
  Age: 44 Year
  Sex: Female

DRUGS (9)
  1. LAMISIL [Suspect]
     Indication: NAIL TINEA
     Dosage: 125 MG/D
     Route: 048
     Dates: start: 20040302, end: 20040430
  2. PURSENNID [Concomitant]
     Dosage: 48 MG/D
     Route: 048
  3. DEPAS [Concomitant]
     Dosage: 1.5 MG/D
     Route: 048
  4. HALOPERIDOL [Concomitant]
     Dosage: 2.25 MG/D
     Route: 048
  5. MAGNESIUM OXIDE [Concomitant]
     Dosage: 990 MG/D
     Route: 048
  6. LEVOTOMIN [Concomitant]
     Dosage: 2.5 MG/D
     Route: 048
  7. PROMETHAZINE HCL [Concomitant]
     Dosage: 25 MG/D
     Route: 048
  8. ROHYPNOL [Concomitant]
     Dosage: 2 MG/D
     Route: 048
  9. DIAZEPAM [Concomitant]
     Route: 048

REACTIONS (9)
  - ALANINE AMINOTRANSFERASE INCREASED [None]
  - ASPARTATE AMINOTRANSFERASE INCREASED [None]
  - BIOPSY LIVER ABNORMAL [None]
  - GAMMA-GLUTAMYLTRANSFERASE INCREASED [None]
  - HEPATIC ENZYME INCREASED [None]
  - HEPATIC FIBROSIS [None]
  - HEPATIC FUNCTION ABNORMAL [None]
  - LIVER DISORDER [None]
  - MALAISE [None]
